FAERS Safety Report 23622054 (Version 1)
Quarter: 2024Q1

REPORT INFORMATION
  Report Type: Spontaneous
  Country: IT (occurrence: IT)
  Receive Date: 20240312
  Receipt Date: 20240312
  Transmission Date: 20240409
  Serious: Yes (Hospitalization)
  Sender: FDA-Public Use
  Company Number: IT-OPELLA-2024OHG007511

PATIENT
  Age: 29 Year
  Sex: Female

DRUGS (2)
  1. XYZAL ALLERGY 24HR [Suspect]
     Active Substance: LEVOCETIRIZINE DIHYDROCHLORIDE
     Indication: Rhinitis allergic
     Route: 048
     Dates: start: 20240102
  2. BETAMETHASONE SODIUM PHOSPHATE [Suspect]
     Active Substance: BETAMETHASONE SODIUM PHOSPHATE
     Indication: Rhinitis allergic
     Route: 048
     Dates: start: 20240102

REACTIONS (5)
  - Arthralgia [Recovering/Resolving]
  - Face oedema [Recovered/Resolved]
  - Asthenia [Recovering/Resolving]
  - Headache [Recovering/Resolving]
  - Hypersensitivity [Recovering/Resolving]

NARRATIVE: CASE EVENT DATE: 20240105
